FAERS Safety Report 4713018-6 (Version None)
Quarter: 2005Q3

REPORT INFORMATION
  Report Type: 
  Country: None (occurrence: None)
  Receive Date: 20050713
  Receipt Date: 20050701
  Transmission Date: 20060218
  Serious: Yes (Hospitalization)
  Sender: FDA-Public Use
  Company Number: US-KINGPHARMUSA00001-K200500908

PATIENT
  Age: 75 Year
  Sex: Female
  Weight: 54 kg

DRUGS (3)
  1. SILVADENE CREAM 1% [Suspect]
     Indication: THERMAL BURN
     Dosage: 1 %, TWICE
     Route: 061
     Dates: start: 20040101, end: 20040101
  2. EVISTA [Concomitant]
     Route: 048
  3. VITAMINS [Concomitant]
     Indication: VITAMIN SUPPLEMENTATION
     Route: 048

REACTIONS (5)
  - ANOREXIA [None]
  - EYE SWELLING [None]
  - SKIN DISORDER [None]
  - SWELLING FACE [None]
  - VISUAL DISTURBANCE [None]
